FAERS Safety Report 9467451 (Version 2)
Quarter: 2013Q4

REPORT INFORMATION
  Report Type: Spontaneous
  Country: US (occurrence: US)
  Receive Date: 20130821
  Receipt Date: 20131007
  Transmission Date: 20140711
  Serious: Yes (Other)
  Sender: FDA-Public Use
  Company Number: PHEH2013US017511

PATIENT
  Sex: Female

DRUGS (5)
  1. VIVELLE DOT [Suspect]
     Indication: HORMONE REPLACEMENT THERAPY
     Dosage: UNK UKN, UNK
     Route: 062
  2. ESTRADIOL [Suspect]
     Dosage: UNK UKN, UNK
  3. ELMIRON [Concomitant]
     Dosage: UNK UKN, UNK
  4. METHOTREXATE [Concomitant]
     Dosage: UNK UKN, UNK
  5. FOLIC ACID [Concomitant]
     Dosage: UNK UKN, UNK

REACTIONS (4)
  - Systemic lupus erythematosus [Unknown]
  - Skin disorder [Unknown]
  - Headache [Unknown]
  - Product adhesion issue [Unknown]
